FAERS Safety Report 17696915 (Version 1)
Quarter: 2020Q2

REPORT INFORMATION
  Report Type: Spontaneous
  Country: US (occurrence: US)
  Receive Date: 20200423
  Receipt Date: 20200423
  Transmission Date: 20200714
  Serious: No
  Sender: FDA-Public Use
  Company Number: US-HORIZON-PRE-0121-2020

PATIENT
  Age: 68 Year
  Sex: Female

DRUGS (5)
  1. AMLODIPINE [Concomitant]
     Active Substance: AMLODIPINE BESYLATE
  2. LEVOTHYROXINE. [Concomitant]
     Active Substance: LEVOTHYROXINE
  3. LOSARTAN. [Concomitant]
     Active Substance: LOSARTAN
  4. VITAMIN D [Concomitant]
     Active Substance: VITAMIN D NOS
  5. RAYOS [Suspect]
     Active Substance: PREDNISONE
     Indication: PRODUCT USED FOR UNKNOWN INDICATION
     Dosage: 5MG TABLET ONCE A DAY
     Route: 048

REACTIONS (9)
  - Pain [Recovering/Resolving]
  - Asthenia [Recovering/Resolving]
  - Drooling [Recovering/Resolving]
  - Nausea [Recovering/Resolving]
  - Suspected counterfeit product [Recovering/Resolving]
  - Heart rate decreased [Unknown]
  - Feeling abnormal [Recovering/Resolving]
  - Feeling hot [Recovering/Resolving]
  - Blood pressure increased [Recovering/Resolving]
